FAERS Safety Report 8462525-1 (Version None)
Quarter: 2012Q2

REPORT INFORMATION
  Report Type: 
  Country: None (occurrence: None)
  Receive Date: 20120625
  Receipt Date: 20120619
  Transmission Date: 20120825
  Serious: Yes (Hospitalization)
  Sender: FDA-Public Use
  Company Number: US-BAYER-2012-061889

PATIENT
  Age: 38 Year
  Sex: Female

DRUGS (7)
  1. YASMIN [Suspect]
  2. PREDNISONE [Concomitant]
     Dosage: 10 MG, 12 DAY, AS DIRECTED
  3. FLUOCINONIDE [Concomitant]
     Dosage: UNK
  4. DESONIDE [Concomitant]
     Dosage: UNK
  5. AUGMENTIN '125' [Concomitant]
     Dosage: 875 MG, UNK
     Route: 048
  6. METRONIDAZOLE [Concomitant]
     Dosage: UNK
     Route: 061
  7. NAPROXEN [Concomitant]
     Dosage: 550 MG, UNK

REACTIONS (2)
  - DEEP VEIN THROMBOSIS [None]
  - PULMONARY EMBOLISM [None]
